FAERS Safety Report 25924281 (Version 1)
Quarter: 2025Q4

REPORT INFORMATION
  Report Type: Report from Study
  Country: GB (occurrence: GB)
  Receive Date: 20251015
  Receipt Date: 20251015
  Transmission Date: 20260118
  Serious: Yes (Other)
  Sender: NOVARTIS
  Company Number: GB-002147023-NVSC2025GB134757

PATIENT
  Sex: Female

DRUGS (1)
  1. KESIMPTA [Suspect]
     Active Substance: OFATUMUMAB
     Indication: Multiple sclerosis
     Dosage: 200 MG, QMO
     Route: 058
     Dates: start: 202501

REACTIONS (9)
  - Immunodeficiency [Unknown]
  - Nasopharyngitis [Unknown]
  - Influenza [Unknown]
  - Oral herpes [Unknown]
  - Fungal infection [Unknown]
  - Illness [Unknown]
  - Pyrexia [Unknown]
  - Pain [Unknown]
  - Viral infection [Unknown]
